FAERS Safety Report 5328772-2 (Version None)
Quarter: 2007Q2

REPORT INFORMATION
  Report Type: 
  Country: None (occurrence: None)
  Receive Date: 20070518
  Receipt Date: 20070508
  Transmission Date: 20071010
  Serious: Yes (Hospitalization)
  Sender: FDA-Public Use
  Company Number: RU-BRISTOL-MYERS SQUIBB COMPANY-13772397

PATIENT
  Age: 54 Year
  Sex: Male

DRUGS (6)
  1. SAXAGLIPTIN [Suspect]
     Indication: DIABETES MELLITUS NON-INSULIN-DEPENDENT
     Route: 048
     Dates: start: 20070418
  2. BLINDED: PLACEBO [Suspect]
     Indication: DIABETES MELLITUS NON-INSULIN-DEPENDENT
     Route: 048
     Dates: start: 20070418
  3. METFORMIN HCL [Suspect]
     Indication: DIABETES MELLITUS NON-INSULIN-DEPENDENT
     Route: 048
     Dates: start: 20070425
  4. INDAPAMID [Concomitant]
     Dates: start: 20070404
  5. RAMIPRIL [Concomitant]
     Dates: start: 20070404
  6. SIMVASTATIN [Concomitant]
     Dates: start: 20070425, end: 20070504

REACTIONS (1)
  - TOXIC SKIN ERUPTION [None]
